FAERS Safety Report 7967677-5 (Version None)
Quarter: 2011Q4

REPORT INFORMATION
  Report Type: 
  Country: None (occurrence: None)
  Receive Date: 20111209
  Receipt Date: 20111129
  Transmission Date: 20120403
  Serious: Yes (Hospitalization)
  Sender: FDA-Public Use
  Company Number: US-BAYER-2011-025808

PATIENT
  Age: 24 Year
  Sex: Female
  Weight: 97.052 kg

DRUGS (3)
  1. ZITHROMAX [Concomitant]
     Dosage: UNK
     Dates: start: 20090101
  2. YAZ [Suspect]
     Indication: CONTRACEPTION
     Dosage: UNK
     Dates: start: 20081001, end: 20090301
  3. MOTRIN [Concomitant]

REACTIONS (1)
  - CHOLECYSTITIS [None]
